FAERS Safety Report 12985075 (Version 2)
Quarter: 2016Q4

REPORT INFORMATION
  Report Type: Report from Study
  Country: CO (occurrence: CO)
  Receive Date: 20161129
  Receipt Date: 20161207
  Transmission Date: 20170207
  Serious: Yes (Death)
  Sender: FDA-Public Use
  Company Number: CO-ASTRAZENECA-2016SF25636

PATIENT
  Age: 23554 Day
  Sex: Female

DRUGS (3)
  1. METFORMIN [Concomitant]
     Active Substance: METFORMIN HYDROCHLORIDE
  2. BRILINTA [Suspect]
     Active Substance: TICAGRELOR
     Indication: ACUTE CORONARY SYNDROME
     Route: 048
     Dates: start: 201608, end: 20161109
  3. TRIMETAZIDINE DIHYDROCHLORIDE [Concomitant]
     Active Substance: TRIMETAZIDINE DIHYDROCHLORIDE

REACTIONS (1)
  - Infarction [Fatal]

NARRATIVE: CASE EVENT DATE: 20161109
